FAERS Safety Report 13181727 (Version 2)
Quarter: 2017Q1

REPORT INFORMATION
  Report Type: Spontaneous
  Country: US (occurrence: US)
  Receive Date: 20170202
  Receipt Date: 20170322
  Transmission Date: 20170428
  Serious: Yes (Hospitalization)
  Sender: FDA-Public Use
  Company Number: US-VIFOR (INTERNATIONAL) INC.-VIT-2017-00959

PATIENT
  Age: 77 Year
  Sex: Female

DRUGS (1)
  1. VELTASSA [Suspect]
     Active Substance: PATIROMER
     Indication: HYPERKALAEMIA
     Route: 048
     Dates: start: 20160719, end: 2017

REACTIONS (7)
  - Amnesia [Unknown]
  - Dehydration [Unknown]
  - Blood potassium increased [Unknown]
  - Malaise [Unknown]
  - Influenza [Unknown]
  - Drug dose omission [Unknown]
  - Renal failure [Unknown]

NARRATIVE: CASE EVENT DATE: 201612
